FAERS Safety Report 19533168 (Version 1)
Quarter: 2021Q3

REPORT INFORMATION
  Report Type: Report from Study
  Country: US (occurrence: US)
  Receive Date: 20210713
  Receipt Date: 20210713
  Transmission Date: 20211014
  Serious: Yes (Disabling, Other)
  Sender: FDA-Public Use
  Company Number: US-SA-2020SA094157

PATIENT
  Age: 56 Year
  Sex: Female

DRUGS (7)
  1. DUPILUMAB [Suspect]
     Active Substance: DUPILUMAB
     Dosage: 200 MG, QOW
     Route: 058
     Dates: start: 20200617
  2. TDAP [Concomitant]
     Active Substance: TETANUS TOXOID, REDUCED DIPHTHERIA TOXOID AND ACELLULAR PERTUSSIS VACCINE ADSORBED, TDAP
  3. ABILIFY [Concomitant]
     Active Substance: ARIPIPRAZOLE
  4. TYLENOL [Concomitant]
     Active Substance: ACETAMINOPHEN
  5. LISINOPRIL. [Concomitant]
     Active Substance: LISINOPRIL
  6. DUPILUMAB [Suspect]
     Active Substance: DUPILUMAB
     Indication: ASTHMA
     Dosage: 400 MG, 1X
     Route: 058
     Dates: start: 2020, end: 2020
  7. ASPIRIN [ACETYLSALICYLIC ACID] [Concomitant]
     Active Substance: ASPIRIN

REACTIONS (16)
  - Pain in extremity [Recovered/Resolved]
  - Sinus congestion [Unknown]
  - Peripheral swelling [Unknown]
  - Infrequent bowel movements [Not Recovered/Not Resolved]
  - Therapeutic response unexpected [Unknown]
  - Pollakiuria [Unknown]
  - Sitting disability [Unknown]
  - Hip surgery [Unknown]
  - Faeces hard [Not Recovered/Not Resolved]
  - Muscle strain [Unknown]
  - Weight increased [Unknown]
  - Glaucoma [Unknown]
  - Gait inability [Unknown]
  - Eye pain [Recovered/Resolved]
  - Constipation [Not Recovered/Not Resolved]
  - Abdominal pain upper [Unknown]

NARRATIVE: CASE EVENT DATE: 2020
